FAERS Safety Report 10578549 (Version 6)
Quarter: 2014Q4

REPORT INFORMATION
  Report Type: Spontaneous
  Country: US (occurrence: US)
  Receive Date: 20141112
  Receipt Date: 20141222
  Transmission Date: 20150529
  Serious: Yes (Hospitalization, Other)
  Sender: FDA-Public Use
  Company Number: US-UNITED THERAPEUTICS-UNT-2014-010617

PATIENT
  Age: 43 Year
  Sex: Male
  Weight: 81.63 kg

DRUGS (7)
  1. LETAIRIS [Concomitant]
     Active Substance: AMBRISENTAN
     Indication: PRODUCT USED FOR UNKNOWN INDICATION
  2. ADCIRCA [Concomitant]
     Active Substance: TADALAFIL
     Indication: PRODUCT USED FOR UNKNOWN INDICATION
  3. REMODULIN [Suspect]
     Active Substance: TREPROSTINIL
     Indication: PULMONARY HYPERTENSION
     Dosage: 0.004 ?G/KG, CONTINUING
     Route: 041
     Dates: start: 20141015
  4. REMODULIN [Suspect]
     Active Substance: TREPROSTINIL
     Indication: COR PULMONALE
     Dosage: 0.003 ?G/KG, CONTINUING
     Route: 041
     Dates: start: 20141027
  5. REMODULIN [Suspect]
     Active Substance: TREPROSTINIL
     Dosage: 0.014 ?G/KG, CONTINUING
     Route: 041
     Dates: start: 20141027
  6. REMODULIN [Suspect]
     Active Substance: TREPROSTINIL
     Dosage: 0.006 ?G/KG, CONTINUING
     Route: 041
     Dates: start: 20141029
  7. REMODULIN [Suspect]
     Active Substance: TREPROSTINIL
     Dosage: 0.006 ?G/KG, CONTINUING
     Route: 041
     Dates: start: 20141029

REACTIONS (19)
  - Gastrointestinal infection [Unknown]
  - Heart rate increased [Recovering/Resolving]
  - Dyspnoea [Unknown]
  - Pain [Unknown]
  - Depressed mood [Unknown]
  - Cough [Unknown]
  - Blood pressure decreased [Unknown]
  - Headache [Unknown]
  - Drug dose omission [Unknown]
  - Renal failure [Unknown]
  - Chills [Recovering/Resolving]
  - Cyanosis [Recovering/Resolving]
  - Abdominal pain [Unknown]
  - Pyrexia [Unknown]
  - Septic shock [Unknown]
  - Asthenia [Unknown]
  - Device related infection [Unknown]
  - Communication disorder [Recovered/Resolved]
  - Device issue [Unknown]

NARRATIVE: CASE EVENT DATE: 2014
